FAERS Safety Report 13960272 (Version 2)
Quarter: 2018Q3

REPORT INFORMATION
  Report Type: Report from Study
  Country: JP (occurrence: JP)
  Receive Date: 20170912
  Receipt Date: 20180906
  Transmission Date: 20181010
  Serious: Yes (Other)
  Sender: FDA-Public Use
  Company Number: JP-ACTELION-A-CH2017-159059

PATIENT
  Age: 75 Year
  Sex: Female

DRUGS (8)
  1. ADEMPAS [Concomitant]
     Active Substance: RIOCIGUAT
  2. BONOTEO [Concomitant]
     Active Substance: MINODRONIC ACID
  3. WARFARIN [Suspect]
     Active Substance: WARFARIN
     Indication: PULMONARY HYPERTENSION
     Dosage: UNK MG, QD
     Route: 065
     Dates: start: 201210
  4. DIART [Concomitant]
     Active Substance: AZOSEMIDE
  5. ALDACTONE A [Concomitant]
     Active Substance: SPIRONOLACTONE
  6. PARIET [Concomitant]
     Active Substance: RABEPRAZOLE SODIUM
  7. OPSUMIT [Suspect]
     Active Substance: MACITENTAN
     Indication: PULMONARY HYPERTENSION
     Dosage: 10 MG, QD
     Route: 048
     Dates: start: 20160720
  8. PARAMIDIN [Suspect]
     Active Substance: BUCOLOME
     Indication: HYPERURICAEMIA
     Dosage: 300 MG, QD
     Route: 048
     Dates: start: 201210

REACTIONS (3)
  - International normalised ratio increased [Recovered/Resolved]
  - Upper respiratory tract inflammation [Recovered/Resolved]
  - Decreased appetite [Recovered/Resolved]

NARRATIVE: CASE EVENT DATE: 20160926
